FAERS Safety Report 16712740 (Version 2)
Quarter: 2019Q3

REPORT INFORMATION
  Report Type: Report from Study
  Country: None (occurrence: RO)
  Receive Date: 20190817
  Receipt Date: 20190821
  Transmission Date: 20191004
  Serious: Yes (Death, Hospitalization, Other)
  Sender: FDA-Public Use
  Company Number: RO-ABBVIE-19K-135-2889480-00

PATIENT
  Age: 71 Year
  Sex: Male

DRUGS (1)
  1. DUODOPA [Suspect]
     Active Substance: CARBIDOPA\LEVODOPA
     Indication: PARKINSON^S DISEASE
     Dosage: DM=7.60??DC=3.70??ED=1.60??NRED=2;??DMN=0.00??DCN=0.00??EDN=0.00??NREDN=0
     Route: 050
     Dates: start: 20170530, end: 20190813

REACTIONS (8)
  - Hypotension [Recovering/Resolving]
  - Fall [Unknown]
  - Mixed dementia [Recovering/Resolving]
  - Hand fracture [Recovering/Resolving]
  - Cardio-respiratory arrest [Fatal]
  - Metabolic acidosis [Recovering/Resolving]
  - Dizziness [Unknown]
  - Headache [Unknown]

NARRATIVE: CASE EVENT DATE: 201908
